FAERS Safety Report 6737883-6 (Version None)
Quarter: 2010Q2

REPORT INFORMATION
  Report Type: 
  Country: None (occurrence: None)
  Receive Date: 20100524
  Receipt Date: 20100519
  Transmission Date: 20101027
  Serious: Yes (Death, Life-Threatening, Hospitalization, Disabling)
  Sender: FDA-Public Use
  Company Number: US-ROCHE-658624

PATIENT
  Sex: Male
  Weight: 108 kg

DRUGS (7)
  1. TOCILIZUMAB [Suspect]
     Indication: RHEUMATOID ARTHRITIS
     Dosage: LAST DOSE RECEIVED PRIOR TO THE EVENT ON 03 SEPTEMBER 09,  FORM: INFUSION
     Route: 042
     Dates: start: 20090512, end: 20090930
  2. METHOTREXATE [Suspect]
     Indication: RHEUMATOID ARTHRITIS
     Dosage: LAST DOSE PRIOR TO SAE: 07 SEPTEMBER 2009., FORM: PILL
     Route: 048
     Dates: start: 20090513, end: 20090930
  3. PREDNISONE TAB [Concomitant]
     Dates: start: 20030101
  4. FOLIC ACID [Concomitant]
     Dates: start: 20030101
  5. METHOTREXATE [Concomitant]
     Dates: start: 20030101
  6. IBUPROFEN [Concomitant]
     Dosage: DOSE; PRN
     Dates: start: 20030101
  7. IBUPROFEN [Concomitant]
     Dates: start: 20030101

REACTIONS (5)
  - CARDIAC FAILURE CONGESTIVE [None]
  - RENAL FAILURE ACUTE [None]
  - SCROTAL ABSCESS [None]
  - SEPTIC SHOCK [None]
  - SKIN NECROSIS [None]
